FAERS Safety Report 6226567-9 (Version None)
Quarter: 2009Q2

REPORT INFORMATION
  Report Type: 
  Country: None (occurrence: None)
  Receive Date: 20090612
  Receipt Date: 20090602
  Transmission Date: 20091009
  Serious: Yes (Other)
  Sender: FDA-Public Use
  Company Number: US-PFIZER INC-2009222123

PATIENT
  Sex: Female

DRUGS (1)
  1. TOVIAZ [Suspect]

REACTIONS (4)
  - ABDOMINAL PAIN UPPER [None]
  - DRUG INEFFECTIVE [None]
  - GASTROINTESTINAL SURGERY [None]
  - WEIGHT DECREASED [None]
